FAERS Safety Report 5889996-9 (Version None)
Quarter: 2008Q3

REPORT INFORMATION
  Report Type: 
  Country: None (occurrence: None)
  Receive Date: 20080919
  Receipt Date: 20080912
  Transmission Date: 20090109
  Serious: Yes (Hospitalization)
  Sender: FDA-Public Use
  Company Number: JP-ABBOTT-08P-087-0473410-00

PATIENT
  Sex: Female
  Weight: 35 kg

DRUGS (14)
  1. CLARITHROMYCIN [Suspect]
     Indication: MYCOBACTERIUM AVIUM COMPLEX INFECTION
     Route: 048
     Dates: start: 20040630, end: 20051014
  2. CLARITHROMYCIN [Suspect]
     Route: 048
     Dates: start: 20030908, end: 20040630
  3. CLARITHROMYCIN [Suspect]
     Route: 048
     Dates: start: 20051018, end: 20051031
  4. ESTAZOLAM [Suspect]
     Indication: DRUG USE FOR UNKNOWN INDICATION
     Dates: start: 20040630
  5. ESTAZOLAM [Suspect]
     Dates: start: 20051018, end: 20051031
  6. AMLODIPINE BESYLATE [Suspect]
     Indication: HYPERTENSION
     Route: 048
     Dates: start: 20040630
  7. AMLODIPINE BESYLATE [Suspect]
     Route: 048
     Dates: start: 20051018
  8. ETHYL LOFLAZEPATE [Suspect]
     Indication: DRUG USE FOR UNKNOWN INDICATION
     Dates: start: 20040630
  9. ETHYL LOFLAZEPATE [Suspect]
     Dates: start: 20051018, end: 20051031
  10. REBAMIPIDE [Suspect]
     Indication: DRUG USE FOR UNKNOWN INDICATION
     Dates: start: 20040630
  11. REBAMIPIDE [Suspect]
     Dates: start: 20051018, end: 20051031
  12. AMBROXOL HYDROCHLORIDE [Concomitant]
     Indication: COUGH
     Route: 048
     Dates: start: 20030912, end: 20051031
  13. AMBROXOL HYDROCHLORIDE [Concomitant]
     Indication: PRODUCTIVE COUGH
  14. HACHIAZULE [Concomitant]
     Indication: OROPHARYNGEAL PAIN
     Dates: start: 20031105

REACTIONS (3)
  - COLITIS ULCERATIVE [None]
  - MELAENA [None]
  - PSEUDOMEMBRANOUS COLITIS [None]
